FAERS Safety Report 7954206-5 (Version None)
Quarter: 2011Q4

REPORT INFORMATION
  Report Type: 
  Country: None (occurrence: None)
  Receive Date: 20111202
  Receipt Date: 20111124
  Transmission Date: 20120403
  Serious: Yes (Hospitalization, Other)
  Sender: FDA-Public Use
  Company Number: JP-PFIZER INC-2011292507

PATIENT
  Age: 64 Year
  Sex: Female

DRUGS (3)
  1. SELBEX [Concomitant]
  2. VOLTAREN [Suspect]
     Route: 054
  3. CELECOXIB [Suspect]
     Dosage: 200 MG, UNK
     Route: 048

REACTIONS (1)
  - HAEMATEMESIS [None]
